FAERS Safety Report 12197995 (Version 1)
Quarter: 2016Q1

REPORT INFORMATION
  Report Type: Spontaneous
  Country: None (occurrence: None)
  Receive Date: 20160321
  Receipt Date: 20160321
  Transmission Date: 20160526
  Serious: No
  Sender: FDA-Public Use
  Company Number: None

PATIENT
  Age: 57 Year
  Sex: Female

DRUGS (10)
  1. HYDROCHLOROTHIAZIDE. [Concomitant]
     Active Substance: HYDROCHLOROTHIAZIDE
  2. NEURONTIN [Concomitant]
     Active Substance: GABAPENTIN
  3. MIRALAX [Concomitant]
     Active Substance: POLYETHYLENE GLYCOL 3350
  4. LONSURF [Suspect]
     Active Substance: TIPIRACIL HYDROCHLORIDE\TRIFLURIDINE
     Indication: COLON CANCER STAGE IV
     Dosage: 2-3 PILLS TWICE DAILY TAKEN BY MOUTH
     Route: 048
     Dates: start: 20151111, end: 20160320
  5. SENNA-S [Concomitant]
     Active Substance: DOCUSATE SODIUM\SENNOSIDES
  6. HYDROMORPHONE [Concomitant]
     Active Substance: HYDROMORPHONE
  7. ZOFRAN [Concomitant]
     Active Substance: ONDANSETRON HYDROCHLORIDE
  8. EFFER-K [Concomitant]
  9. VITAMIN D3 [Concomitant]
     Active Substance: CHOLECALCIFEROL
  10. FENTANYL PAIN PATCH [Concomitant]

REACTIONS (6)
  - Peripheral swelling [None]
  - Middle ear effusion [None]
  - Dysphonia [None]
  - Dyspnoea [None]
  - Abdominal distension [None]
  - Deafness [None]

NARRATIVE: CASE EVENT DATE: 20151114
